FAERS Safety Report 13860069 (Version 1)
Quarter: 2017Q3

REPORT INFORMATION
  Report Type: Spontaneous
  Country: US (occurrence: US)
  Receive Date: 20170811
  Receipt Date: 20170811
  Transmission Date: 20171127
  Serious: No
  Sender: FDA-Public Use
  Company Number: US-BAYER-2017-153809

PATIENT
  Age: 70 Year
  Sex: Female
  Weight: 64 kg

DRUGS (3)
  1. MIRALAX [Suspect]
     Active Substance: POLYETHYLENE GLYCOL 3350
     Indication: ANORECTAL DISORDER
     Dosage: 1 CAPFUL DOSE
     Route: 048
     Dates: end: 20170809
  2. MIRALAX [Suspect]
     Active Substance: POLYETHYLENE GLYCOL 3350
     Indication: GASTROINTESTINAL DISORDER
  3. BENEFIBER [Concomitant]
     Active Substance: STARCH, WHEAT

REACTIONS (3)
  - Product use complaint [None]
  - Product use in unapproved indication [Unknown]
  - Expired product administered [Unknown]

NARRATIVE: CASE EVENT DATE: 20170809
